FAERS Safety Report 4679800-9 (Version None)
Quarter: 2005Q2

REPORT INFORMATION
  Report Type: 
  Country: None (occurrence: None)
  Receive Date: 20050602
  Receipt Date: 20050523
  Transmission Date: 20051028
  Serious: Yes (Hospitalization)
  Sender: FDA-Public Use
  Company Number: JP-MERCK-0505USA03426

PATIENT
  Age: 20 Year
  Sex: Male

DRUGS (8)
  1. PEPCID [Suspect]
     Indication: GASTRIC ULCER
     Route: 048
     Dates: start: 20050502, end: 20050509
  2. PEPCID [Suspect]
     Indication: DUODENAL ULCER
     Route: 048
     Dates: start: 20050502, end: 20050509
  3. CEFAMEZIN [Suspect]
     Route: 065
     Dates: start: 20050502, end: 20050509
  4. PENTCILLIN [Suspect]
     Route: 065
     Dates: start: 20050502, end: 20050509
  5. BUSCOPAN [Suspect]
     Route: 065
     Dates: start: 20050502, end: 20050509
  6. MEROPENEM [Suspect]
     Route: 065
     Dates: start: 20050502, end: 20050509
  7. CEFMETAZON [Suspect]
     Route: 065
     Dates: start: 20050502, end: 20050509
  8. LOXONIN [Concomitant]
     Indication: PYREXIA
     Route: 065
     Dates: start: 20050501

REACTIONS (1)
  - EOSINOPHILIC MYOCARDITIS [None]
